FAERS Safety Report 9203858 (Version 1)
Quarter: 2013Q2

REPORT INFORMATION
  Report Type: Spontaneous
  Country: NO (occurrence: NO)
  Receive Date: 20130402
  Receipt Date: 20130402
  Transmission Date: 20140414
  Serious: Yes (Other)
  Sender: FDA-Public Use
  Company Number: NO-TEVA-394486ISR

PATIENT
  Sex: Female

DRUGS (7)
  1. OLANZAPINE [Suspect]
     Dosage: 2.5 MILLIGRAM DAILY;
     Route: 048
  2. WELLBUTRIN [Suspect]
     Indication: DEPRESSION
     Dosage: 150 MILLIGRAM DAILY;
     Route: 048
  3. LITHIONIT [Concomitant]
     Indication: DEPRESSION
     Route: 048
  4. LOSARTAN [Concomitant]
     Indication: HYPERTENSION
     Route: 048
  5. IMOVANE [Concomitant]
     Indication: INSOMNIA
     Route: 048
  6. KALEORID [Concomitant]
     Indication: BLOOD POTASSIUM DECREASED
     Route: 048
  7. LEVAXIN [Concomitant]
     Indication: HYPOTHYROIDISM
     Route: 048

REACTIONS (5)
  - Gait disturbance [Recovering/Resolving]
  - Fall [Recovering/Resolving]
  - Tremor [Recovering/Resolving]
  - Spinal compression fracture [Recovering/Resolving]
  - Parkinsonism [Recovering/Resolving]
